FAERS Safety Report 4353352-5 (Version None)
Quarter: 2004Q2

REPORT INFORMATION
  Report Type: 
  Country: None (occurrence: None)
  Receive Date: 20040427
  Receipt Date: 20040412
  Transmission Date: 20050107
  Serious: No
  Sender: FDA-Public Use
  Company Number: THYM-10095

PATIENT
  Sex: Male
  Weight: 77 kg

DRUGS (7)
  1. THYMOGLOBULIN [Suspect]
     Indication: HEART TRANSPLANT REJECTION
     Dosage: 1.5 MG/KG IV
     Route: 042
     Dates: start: 20040410, end: 20040410
  2. SOLU-MEDROL [Concomitant]
  3. BENADRYL [Concomitant]
  4. TYLENOL (CAPLET) [Concomitant]
  5. PROGRAF [Concomitant]
  6. SIROLIMUS [Concomitant]
  7. PREDNISONE [Concomitant]

REACTIONS (5)
  - BLOOD CREATININE INCREASED [None]
  - CHILLS [None]
  - HYPERTENSION [None]
  - NAUSEA [None]
  - PYREXIA [None]
